FAERS Safety Report 23657984 (Version 1)
Quarter: 2024Q1

REPORT INFORMATION
  Report Type: Spontaneous
  Country: US (occurrence: US)
  Receive Date: 20240321
  Receipt Date: 20240321
  Transmission Date: 20240409
  Serious: Yes (Other)
  Sender: FDA-Public Use
  Company Number: US-009507513-2403LBN005205

PATIENT
  Age: 70 Year
  Sex: Female

DRUGS (1)
  1. KEYTRUDA [Suspect]
     Active Substance: PEMBROLIZUMAB
     Dosage: 2 MG/KG INTRAVENOUSLY EVERY 3 WEEKS

REACTIONS (2)
  - Polyarthritis [Recovered/Resolved]
  - Tenosynovitis [Recovered/Resolved]
